FAERS Safety Report 8582027-1 (Version None)
Quarter: 2012Q3

REPORT INFORMATION
  Report Type: 
  Country: None (occurrence: None)
  Receive Date: 20120809
  Receipt Date: 20120803
  Transmission Date: 20120928
  Serious: Yes (Other)
  Sender: FDA-Public Use
  Company Number: US-PFIZER INC-2012190679

PATIENT
  Sex: Male

DRUGS (1)
  1. FLECTOR [Suspect]
     Dosage: UNK
     Dates: start: 20120802

REACTIONS (4)
  - CONFUSIONAL STATE [None]
  - AMNESIA [None]
  - CHEST PAIN [None]
  - DIZZINESS [None]
